FAERS Safety Report 22263651 (Version 2)
Quarter: 2023Q2

REPORT INFORMATION
  Report Type: Spontaneous
  Country: US (occurrence: US)
  Receive Date: 20230428
  Receipt Date: 20230518
  Transmission Date: 20230721
  Serious: Yes (Other)
  Sender: FDA-Public Use
  Company Number: US-Accord-310014

PATIENT
  Sex: Male

DRUGS (2)
  1. CISPLATIN [Suspect]
     Active Substance: CISPLATIN
     Indication: Adenocarcinoma pancreas
     Dosage: CUMULATIVE DOSE -1 CYCLICAL
  2. GEMCITABINE [Suspect]
     Active Substance: GEMCITABINE
     Indication: Adenocarcinoma pancreas
     Dosage: CUMULATIVE DOSE -1 CYCLICAL

REACTIONS (3)
  - Off label use [Unknown]
  - Muscular weakness [Unknown]
  - Melaena [Unknown]
